FAERS Safety Report 4347103-8 (Version None)
Quarter: 2004Q2

REPORT INFORMATION
  Report Type: 
  Country: None (occurrence: None)
  Receive Date: 20040422
  Receipt Date: 20040401
  Transmission Date: 20050107
  Serious: Yes (Other)
  Sender: FDA-Public Use
  Company Number: USA031254327

PATIENT
  Age: 76 Year
  Sex: Female

DRUGS (4)
  1. EVISTA [Suspect]
  2. FORTEO [Suspect]
     Indication: OSTEOPOROSIS
     Dates: start: 20031121
  3. MIACALCIN [Concomitant]
  4. CALCIUM WITH VITAMIN D [Concomitant]

REACTIONS (3)
  - BACK PAIN [None]
  - GASTROINTESTINAL DISORDER [None]
  - RENAL DISORDER [None]
